FAERS Safety Report 9275141 (Version 2)
Quarter: 2013Q2

REPORT INFORMATION
  Report Type: Report from Study
  Country: FR (occurrence: FR)
  Receive Date: 20130507
  Receipt Date: 20130614
  Transmission Date: 20140414
  Serious: Yes (Other)
  Sender: FDA-Public Use
  Company Number: FR-BAYER-2013-037337

PATIENT
  Age: 70 Year
  Sex: Male

DRUGS (7)
  1. REGORAFENIB [Suspect]
     Indication: COLORECTAL CANCER
     Dosage: DAILY DOSE 160 MG
     Route: 048
     Dates: start: 20130301
  2. REGORAFENIB [Suspect]
     Indication: COLORECTAL CANCER
     Dosage: DAILY DOSE 120 MG
     Route: 048
     Dates: end: 20130521
  3. REGORAFENIB [Suspect]
     Indication: COLORECTAL CANCER
     Dosage: DAILY DOSE 120 MG
     Route: 048
     Dates: start: 20130601
  4. PROCORALAN [Concomitant]
     Dosage: DAILY DOSE 2 DF
     Route: 048
  5. ACEBUTOLOL [Concomitant]
     Dosage: DAILY DOSE 1 DF
     Route: 048
  6. CRESTOR [Concomitant]
     Dosage: DAILY DOSE 1 DF
     Route: 048
  7. ZOPICLONE [Concomitant]
     Dosage: DAILY DOSE 1 DF
     Route: 048

REACTIONS (7)
  - Renal failure [None]
  - Asthenia [Recovering/Resolving]
  - Decreased appetite [Recovering/Resolving]
  - Dysphonia [None]
  - Headache [None]
  - Blood creatinine increased [Recovering/Resolving]
  - Weight decreased [Recovering/Resolving]
